FAERS Safety Report 21093694 (Version 1)
Quarter: 2022Q3

REPORT INFORMATION
  Report Type: Spontaneous
  Country: TR (occurrence: TR)
  Receive Date: 20220718
  Receipt Date: 20220718
  Transmission Date: 20221026
  Serious: Yes (Other)
  Sender: FDA-Public Use
  Company Number: TR-KVK-TECH, INC-20220700048

PATIENT
  Age: 10 Year
  Sex: Male

DRUGS (2)
  1. METHYLPHENIDATE HYDROCHLORIDE [Suspect]
     Active Substance: METHYLPHENIDATE HYDROCHLORIDE
     Indication: Attention deficit hyperactivity disorder
     Dosage: 36 MILLIGRAM, QD
  2. METHYLPHENIDATE HYDROCHLORIDE [Suspect]
     Active Substance: METHYLPHENIDATE HYDROCHLORIDE
     Dosage: 27 MILLIGRAM, QD

REACTIONS (6)
  - Syncope [Unknown]
  - Disturbance in attention [Unknown]
  - Psychomotor hyperactivity [Unknown]
  - Nausea [Unknown]
  - Insomnia [Unknown]
  - Anxiety [Unknown]
